FAERS Safety Report 17948028 (Version 7)
Quarter: 2020Q3

REPORT INFORMATION
  Report Type: Report from Study
  Country: JP (occurrence: JP)
  Receive Date: 20200626
  Receipt Date: 20200827
  Transmission Date: 20201103
  Serious: Yes (Death, Life-Threatening, Hospitalization, Other)
  Sender: FDA-Public Use
  Company Number: JP-BRISTOL-MYERS SQUIBB COMPANY-BMS-2020-048506

PATIENT
  Age: 73 Year
  Sex: Female
  Weight: 45.8 kg

DRUGS (14)
  1. SODIUM GUALENATE HYDRATE [Concomitant]
     Active Substance: SODIUM GUALENATE MONOHYDRATE
     Indication: ORAL DISCOMFORT
     Dosage: UNK, PRN
     Route: 002
     Dates: start: 20200503, end: 20200623
  2. MIYA?BM [Concomitant]
     Active Substance: CLOSTRIDIUM BUTYRICUM SPORES STRAIN M-55
     Indication: PROPHYLAXIS AGAINST DIARRHOEA
     Dosage: 1 GRAM, Q8H
     Route: 048
     Dates: start: 20200622, end: 20200623
  3. LEVOTHYROXINE NA [Concomitant]
     Active Substance: LEVOTHYROXINE SODIUM
     Indication: ANAPLASTIC THYROID CANCER
     Dosage: 100 MICROGRAM, QD
     Route: 048
     Dates: end: 20200623
  4. EPRAZINONE HYDROCHLORIDE [Concomitant]
     Active Substance: EPRAZINONE HYDROCHLORIDE
     Indication: COUGH
     Dosage: 30 MILLIGRAM, Q8H
     Route: 048
     Dates: end: 20200623
  5. AMLODIPINE BESILATE [Concomitant]
     Active Substance: AMLODIPINE BESYLATE
     Indication: HYPERTENSION
     Dosage: 5 MG, EVERYDAY
     Route: 048
     Dates: end: 20200623
  6. ACETAMINOPHEN. [Concomitant]
     Active Substance: ACETAMINOPHEN
     Indication: PHARYNGEAL INFLAMMATION
     Dosage: 600 MILLIGRAM, Q8H
     Route: 048
     Dates: start: 20200512, end: 20200623
  7. PHYSIO 140 [Concomitant]
     Active Substance: CALCIUM GLUCONATE\DEXTROSE\MAGNESIUM CHLORIDE\POTASSIUM CHLORIDE\SODIUM ACETATE\SODIUM CHLORIDE\TRISODIUM CITRATE DIHYDRATE
     Indication: FLUID REPLACEMENT
     Dosage: 500 MILLILITER, QD
     Route: 042
     Dates: start: 20200615, end: 20200623
  8. LANSOPRAZOLE. [Concomitant]
     Active Substance: LANSOPRAZOLE
     Indication: GASTRITIS PROPHYLAXIS
     Dosage: 15 MILLIGRAM, QD
     Route: 048
     Dates: end: 20200623
  9. MECOBALAMIN [Concomitant]
     Active Substance: METHYLCOBALAMIN
     Indication: PRODUCT USED FOR UNKNOWN INDICATION
     Dosage: 500 MILLIGRAM, Q8H
     Route: 048
     Dates: end: 20200615
  10. AMOXICILLIN HYDRATE [Concomitant]
     Active Substance: AMOXICILLIN
     Indication: GINGIVAL ABSCESS
     Dosage: 500 MILLIGRAM, Q8H
     Route: 048
     Dates: start: 20200601, end: 20200615
  11. NIVOLUMAB [Suspect]
     Active Substance: NIVOLUMAB
     Indication: ANAPLASTIC THYROID CANCER
     Dosage: 240 MILLIGRAM, Q2WK
     Route: 041
     Dates: start: 20200501, end: 20200529
  12. BIOFERMIN R [Concomitant]
     Active Substance: DIETARY SUPPLEMENT\PROBIOTICS
     Indication: DIARRHOEA
     Dosage: 1 GRAM, Q8H
     Route: 048
     Dates: start: 20200608, end: 20200615
  13. LENVATINIB [Suspect]
     Active Substance: LENVATINIB
     Indication: ANAPLASTIC THYROID CANCER
     Dosage: 24 MILLIGRAM, QD
     Route: 048
     Dates: start: 20200501, end: 20200608
  14. CELECOXIB. [Concomitant]
     Active Substance: CELECOXIB
     Indication: TUMOUR PAIN
     Dosage: 200 MILLIGRAM, Q12H
     Route: 048
     Dates: end: 20200623

REACTIONS (5)
  - Acute myocardial infarction [Not Recovered/Not Resolved]
  - Myocarditis [Not Recovered/Not Resolved]
  - Air embolism [Not Recovered/Not Resolved]
  - Interstitial lung disease [Recovering/Resolving]
  - Embolism [Fatal]

NARRATIVE: CASE EVENT DATE: 20200615
